FAERS Safety Report 18326433 (Version 1)
Quarter: 2020Q3

REPORT INFORMATION
  Report Type: Spontaneous
  Country: DE (occurrence: DE)
  Receive Date: 20200929
  Receipt Date: 20200929
  Transmission Date: 20201103
  Serious: Yes (Hospitalization)
  Sender: FDA-Public Use
  Company Number: DE-MYLANLABS-2020M1082118

PATIENT
  Age: 71 Year
  Sex: Female
  Weight: 69 kg

DRUGS (8)
  1. COTRIM FORTE [Suspect]
     Active Substance: SULFAMETHOXAZOLE\TRIMETHOPRIM
     Indication: PRODUCT USED FOR UNKNOWN INDICATION
     Dosage: 800|160 MG, PAUSE
  2. FLUCONAZOL [Concomitant]
     Active Substance: FLUCONAZOLE
     Dosage: 100 MILLIGRAM, QD(100 MG, 1?0?0?0)
  3. ACICLOVIR [Concomitant]
     Active Substance: ACYCLOVIR
     Dosage: 400 MILLIGRAM, BID
  4. LEVOTHYROXINE SODIUM. [Concomitant]
     Active Substance: LEVOTHYROXINE SODIUM
     Dosage: 125 MICROGRAM, QD(125 ?G, 1?0?0?0)
  5. COLECALCIFEROL [Concomitant]
     Active Substance: CHOLECALCIFEROL
     Dosage: 20.000 IE/2 WOCHEN, DIENSTAGS
  6. MIRTAZAPINE. [Suspect]
     Active Substance: MIRTAZAPINE
     Indication: PRODUCT USED FOR UNKNOWN INDICATION
     Dosage: 15 MILLIGRAM, QD(15 MG, 0?0?1?0 )
  7. TORASEMID [Concomitant]
     Active Substance: TORSEMIDE
     Dosage: 10 MILLIGRAM, QD(10 MG, 1?0?0?0)
  8. KALIUM VERLA [Concomitant]
     Active Substance: POTASSIUM CITRATE
     Dosage: NK MG, 1?1?1?0

REACTIONS (3)
  - Localised infection [Unknown]
  - Fatigue [Unknown]
  - Liver function test abnormal [Unknown]
